FAERS Safety Report 6167823-2 (Version None)
Quarter: 2009Q2

REPORT INFORMATION
  Report Type: 
  Country: None (occurrence: None)
  Receive Date: 20090427
  Receipt Date: 20090423
  Transmission Date: 20091009
  Serious: Yes (Death)
  Sender: FDA-Public Use
  Company Number: JP-JNJFOC-20090405980

PATIENT
  Sex: Male
  Weight: 69 kg

DRUGS (9)
  1. ITRIZOLE [Suspect]
     Route: 041
  2. ITRIZOLE [Suspect]
     Indication: SYSTEMIC CANDIDA
     Route: 041
  3. DIGOSIN [Concomitant]
     Route: 042
  4. GASTER [Concomitant]
     Indication: PROPHYLAXIS
     Route: 042
  5. HABEKACIN [Concomitant]
     Route: 042
  6. VITAMEDIN [Concomitant]
     Route: 042
  7. ASCORBIC ACID [Concomitant]
     Route: 042
  8. MINOPHAGEN C [Concomitant]
     Route: 042
  9. HEPARIN AND PREPARATIONS [Concomitant]
     Route: 042

REACTIONS (3)
  - HEPATIC FUNCTION ABNORMAL [None]
  - RESPIRATORY FAILURE [None]
  - STAPHYLOCOCCAL SEPSIS [None]
